FAERS Safety Report 18247008 (Version 2)
Quarter: 2020Q4

REPORT INFORMATION
  Report Type: Spontaneous
  Country: JP (occurrence: JP)
  Receive Date: 20200909
  Receipt Date: 20201019
  Transmission Date: 20210113
  Serious: Yes (Hospitalization)
  Sender: FDA-Public Use
  Company Number: JP-AMERICAN REGENT INC-2020001845

PATIENT
  Age: 75 Year
  Sex: Male

DRUGS (3)
  1. TRANSAMIN [Suspect]
     Active Substance: TRANEXAMIC ACID
     Dosage: UNK
  2. GOREISAN                           /08015901/ [Concomitant]
     Active Substance: HERBALS
     Indication: PRODUCT USED FOR UNKNOWN INDICATION
     Dosage: UNK
     Route: 065
     Dates: start: 2019
  3. TRANSAMIN [Suspect]
     Active Substance: TRANEXAMIC ACID
     Indication: PRODUCT USED FOR UNKNOWN INDICATION
     Dosage: UNK UNKNOWN
     Route: 065
     Dates: start: 2019

REACTIONS (2)
  - Carotid artery occlusion [Recovered/Resolved]
  - Subdural haematoma [Recovered/Resolved]

NARRATIVE: CASE EVENT DATE: 201908
